FAERS Safety Report 18637143 (Version 1)
Quarter: 2020Q4

REPORT INFORMATION
  Report Type: Spontaneous
  Country: US (occurrence: US)
  Receive Date: 20201218
  Receipt Date: 20201218
  Transmission Date: 20210114
  Serious: No
  Sender: FDA-Public Use
  Company Number: US-REGENERON PHARMACEUTICALS, INC.-2020-49472

PATIENT

DRUGS (2)
  1. EYLEA [Suspect]
     Active Substance: AFLIBERCEPT
     Dosage: 2 MG, EVERY 6 TO 8 WEEKS, LAST DOSE
     Route: 031
     Dates: start: 20191211, end: 20191211
  2. EYLEA [Suspect]
     Active Substance: AFLIBERCEPT
     Indication: RETINAL HAEMORRHAGE
     Dosage: 2 MG, IN THE RIGHT EYE EVERY 6 TO 8 WEEKS
     Route: 031
     Dates: start: 20191023

REACTIONS (2)
  - Off label use [Unknown]
  - Product dose omission issue [Unknown]
